FAERS Safety Report 10482461 (Version 2)
Quarter: 2014Q4

REPORT INFORMATION
  Report Type: Spontaneous
  Country: US (occurrence: US)
  Receive Date: 20140929
  Receipt Date: 20141126
  Transmission Date: 20150528
  Serious: Yes (Other)
  Sender: FDA-Public Use
  Company Number: US-PFIZER INC-2014265385

PATIENT

DRUGS (1)
  1. GABAPENTIN. [Suspect]
     Active Substance: GABAPENTIN
     Dosage: UNK

REACTIONS (8)
  - C-reactive protein increased [Unknown]
  - Protein urine [Unknown]
  - Mastocytosis [Unknown]
  - White blood cell count increased [Unknown]
  - Local swelling [Unknown]
  - Red blood cell sedimentation rate increased [Unknown]
  - Blood immunoglobulin E increased [Unknown]
  - Blood urine [Unknown]
